FAERS Safety Report 6490926-X (Version None)
Quarter: 2009Q4

REPORT INFORMATION
  Report Type: 
  Country: None (occurrence: None)
  Receive Date: 20091211
  Receipt Date: 20091202
  Transmission Date: 20100525
  Serious: Yes (Hospitalization)
  Sender: FDA-Public Use
  Company Number: JP-ELI_LILLY_AND_COMPANY-JP200909004149

PATIENT
  Age: 71 Year
  Sex: Female
  Weight: 47 kg

DRUGS (2)
  1. GEMZAR [Suspect]
     Indication: PANCREATIC CARCINOMA
     Dosage: 1400 MG, OTHER
     Route: 042
     Dates: start: 20090417, end: 20090501
  2. GEMZAR [Suspect]
     Dosage: 1000 MG, OTHER
     Route: 042
     Dates: start: 20090515, end: 20090619

REACTIONS (4)
  - DECREASED APPETITE [None]
  - NEURITIS [None]
  - OEDEMA PERIPHERAL [None]
  - WHITE BLOOD CELL COUNT DECREASED [None]
